FAERS Safety Report 25455115 (Version 1)
Quarter: 2025Q2

REPORT INFORMATION
  Report Type: Spontaneous
  Country: JP (occurrence: JP)
  Receive Date: 20250619
  Receipt Date: 20250619
  Transmission Date: 20250717
  Serious: Yes (Hospitalization, Other)
  Sender: CHEPLAPHARM
  Company Number: JP-CLGN-JP-CLI-2025-001360

PATIENT
  Age: 84 Year
  Sex: Female

DRUGS (1)
  1. HYDROXYUREA [Suspect]
     Active Substance: HYDROXYUREA
     Indication: Myeloproliferative neoplasm
     Route: 048

REACTIONS (4)
  - Cardiac failure acute [Unknown]
  - Cardiac amyloidosis [Unknown]
  - Hypergammaglobulinaemia benign monoclonal [Unknown]
  - Off label use [Unknown]
